FAERS Safety Report 19431810 (Version 1)
Quarter: 2021Q2

REPORT INFORMATION
  Report Type: Spontaneous
  Country: US (occurrence: US)
  Receive Date: 20210617
  Receipt Date: 20210617
  Transmission Date: 20210717
  Serious: Yes (Other)
  Sender: FDA-Public Use
  Company Number: US-ALLERGAN-2024106US

PATIENT
  Sex: Female

DRUGS (1)
  1. KYBELLA [Suspect]
     Active Substance: DEOXYCHOLIC ACID
     Indication: FAT TISSUE INCREASED
     Dosage: 12 VIALS, SINGLE
     Route: 058
     Dates: start: 20200601, end: 20200601

REACTIONS (4)
  - Injection site necrosis [Unknown]
  - Off label use [Unknown]
  - Anxiety [Unknown]
  - Injection site scab [Recovering/Resolving]

NARRATIVE: CASE EVENT DATE: 202006
